FAERS Safety Report 8543398-5 (Version None)
Quarter: 2012Q3

REPORT INFORMATION
  Report Type: 
  Country: None (occurrence: None)
  Receive Date: 20120727
  Receipt Date: 20120716
  Transmission Date: 20120928
  Serious: Yes (Hospitalization)
  Sender: FDA-Public Use
  Company Number: US-BAYER-2012-072839

PATIENT
  Age: 24 Year
  Sex: Female
  Weight: 86.17 kg

DRUGS (5)
  1. YAZ [Suspect]
  2. ZOLOFT [Concomitant]
  3. SERTRALINE HYDROCHLORIDE [Concomitant]
     Dosage: 50 MG, DAILY
     Dates: start: 20100305
  4. NAPROXEN [Concomitant]
     Dosage: 375 MG, UNK
     Dates: start: 20100430
  5. NEURONTIN [Concomitant]
     Dosage: 100 MG, DAILY
     Dates: start: 20100305

REACTIONS (1)
  - PULMONARY EMBOLISM [None]
